FAERS Safety Report 6198468-6 (Version None)
Quarter: 2009Q2

REPORT INFORMATION
  Report Type: 
  Country: None (occurrence: None)
  Receive Date: 20090521
  Receipt Date: 20090512
  Transmission Date: 20091009
  Serious: Yes (Hospitalization, Other)
  Sender: FDA-Public Use
  Company Number: PHHY2009BR18731

PATIENT
  Age: 63 Year
  Sex: Male
  Weight: 166 kg

DRUGS (4)
  1. FORASEQ [Suspect]
     Indication: BRONCHOSPASM
     Dosage: 1 INHALATION OF EACH ACTIVE INGREDIENT TWICE PER DAY
  2. FORASEQ [Suspect]
     Dosage: 1 INHALATION OF EACH ACTIVE INGREDIENT 3 TIMES PER DAY
  3. FORADIL                                 /DEN/ [Concomitant]
     Indication: BRONCHOSPASM
     Dosage: UNK
     Dates: start: 20030101
  4. FORADIL                                 /DEN/ [Concomitant]
     Dosage: 1 INHALATION OF EACH ACTIVE INGREDIENT TWICE DAILY
     Dates: start: 20050101

REACTIONS (5)
  - CHRONIC OBSTRUCTIVE PULMONARY DISEASE [None]
  - DYSPNOEA [None]
  - INAPPROPRIATE SCHEDULE OF DRUG ADMINISTRATION [None]
  - PNEUMONIA [None]
  - WEIGHT INCREASED [None]
